FAERS Safety Report 12368854 (Version 1)
Quarter: 2016Q2

REPORT INFORMATION
  Report Type: Spontaneous
  Country: PH (occurrence: PH)
  Receive Date: 20160513
  Receipt Date: 20160513
  Transmission Date: 20160815
  Serious: Yes (Hospitalization)
  Sender: FDA-Public Use
  Company Number: PH-PFIZER INC-2016252655

PATIENT
  Age: 7 Year
  Sex: Male

DRUGS (4)
  1. CLINDAMYCIN PHOSPHATE. [Suspect]
     Active Substance: CLINDAMYCIN PHOSPHATE
     Indication: SWELLING FACE
     Dosage: UNK
     Dates: start: 201604
  2. CLINDAMYCIN PHOSPHATE. [Suspect]
     Active Substance: CLINDAMYCIN PHOSPHATE
     Indication: PNEUMONIA
  3. CLINDAMYCIN PHOSPHATE. [Suspect]
     Active Substance: CLINDAMYCIN PHOSPHATE
     Indication: CARDIOMEGALY
  4. CLINDAMYCIN PHOSPHATE. [Suspect]
     Active Substance: CLINDAMYCIN PHOSPHATE
     Indication: FATIGUE

REACTIONS (4)
  - Drug ineffective [Unknown]
  - Drug-induced liver injury [Unknown]
  - Pericardial effusion [Unknown]
  - Jaundice [Unknown]
